FAERS Safety Report 10667435 (Version 1)
Quarter: 2014Q4

REPORT INFORMATION
  Report Type: Spontaneous
  Country: NZ (occurrence: None)
  Receive Date: 20141218
  Receipt Date: 20141218
  Transmission Date: 20150529
  Serious: Yes (Death)
  Sender: FDA-Public Use
  Company Number: NZ-DEXPHARM-20141052

PATIENT
  Age: 20 Year
  Sex: Female

DRUGS (4)
  1. DICLOFENAC (A SINGLE 150 MG INJECTION MAY HAVE BEEN ADMINISTERED) [Suspect]
     Active Substance: DICLOFENAC
     Indication: RENAL COLIC
     Route: 030
  2. ACETAMINOPHEN. [Concomitant]
     Active Substance: ACETAMINOPHEN
  3. CODEINE PHOSPHATE [Concomitant]
     Active Substance: CODEINE PHOSPHATE
  4. IBUPROFEN. [Concomitant]
     Active Substance: IBUPROFEN

REACTIONS (7)
  - Injection site necrosis [None]
  - Escherichia test positive [None]
  - Streptococcus test positive [None]
  - Acute respiratory distress syndrome [None]
  - Shock [None]
  - Necrotising fasciitis [None]
  - Wound contamination [None]
